FAERS Safety Report 8092552-8 (Version None)
Quarter: 2012Q1

REPORT INFORMATION
  Report Type: 
  Country: None (occurrence: None)
  Receive Date: 20120128
  Receipt Date: 20110822
  Transmission Date: 20120608
  Serious: No
  Sender: FDA-Public Use
  Company Number: US-ABBOTT-11P-163-0849839-00

PATIENT
  Sex: Male
  Weight: 79.904 kg

DRUGS (7)
  1. HUMIRA [Suspect]
     Indication: COLITIS ULCERATIVE
     Route: 058
     Dates: start: 20110418, end: 20110822
  2. PREDNISONE TAB [Concomitant]
     Indication: COLITIS ULCERATIVE
     Dosage: 20MG ONCE DAILY,WEANING OFF 22 AUG 2011
     Route: 048
  3. MULTIPLE UNKNOWN VITAMINS [Concomitant]
     Indication: VITAMIN SUPPLEMENTATION
  4. ENTOCORT EC [Concomitant]
     Indication: COLITIS ULCERATIVE
     Route: 048
     Dates: start: 20110822
  5. HUMIRA [Suspect]
     Route: 058
     Dates: start: 20110822
  6. CORTENEMA [Concomitant]
     Indication: COLITIS ULCERATIVE
  7. IMODIUM [Concomitant]
     Indication: PRODUCT USED FOR UNKNOWN INDICATION

REACTIONS (6)
  - COLITIS [None]
  - ERYTHEMA [None]
  - COLONOSCOPY ABNORMAL [None]
  - DRUG INEFFECTIVE [None]
  - MUCOSAL EROSION [None]
  - APHTHOUS STOMATITIS [None]
